FAERS Safety Report 17907403 (Version 1)
Quarter: 2020Q2

REPORT INFORMATION
  Report Type: Spontaneous
  Country: NL (occurrence: NL)
  Receive Date: 20200617
  Receipt Date: 20200617
  Transmission Date: 20200714
  Serious: Yes (Hospitalization, Disabling)
  Sender: FDA-Public Use
  Company Number: NL-TEVA-2020-NL-1787980

PATIENT
  Age: 49 Year
  Sex: Male
  Weight: 83 kg

DRUGS (6)
  1. LOSARTANKALUIM 50 MG [Suspect]
     Active Substance: LOSARTAN
     Indication: HYPERTENSION
     Dosage: 50 MILLIGRAM DAILY; THERAPY END DATE: ASKED BUT UNKNOWN
     Dates: start: 202004
  2. AMIODARON 200MG [Suspect]
     Active Substance: AMIODARONE
     Indication: ARRHYTHMIA
  3. LIXIANA 60 MG [Suspect]
     Active Substance: EDOXABAN TOSYLATE
     Indication: ARRHYTHMIA
     Dosage: 60 MILLIGRAM DAILY;  LIXIANA, THERAPY END DATE: ASKED BUT UNKNOWN
     Dates: start: 202004
  4. LIXIANA 60 MG [Suspect]
     Active Substance: EDOXABAN TOSYLATE
     Indication: HYPERTENSION
  5. AMIODARON 200MG [Suspect]
     Active Substance: AMIODARONE
     Indication: HYPERTENSION
     Dosage: 200 MILLIGRAM DAILY; THERAPY END DATE: ASKED BUT UNKNOWN
     Dates: start: 202004
  6. LOSARTANKALUIM 50 MG [Suspect]
     Active Substance: LOSARTAN
     Indication: ARRHYTHMIA

REACTIONS (4)
  - Gastrointestinal pain [Recovering/Resolving]
  - Decreased appetite [Recovering/Resolving]
  - Insomnia [Recovering/Resolving]
  - Headache [Unknown]

NARRATIVE: CASE EVENT DATE: 20200403
